FAERS Safety Report 4762664-2 (Version None)
Quarter: 2005Q3

REPORT INFORMATION
  Report Type: 
  Country: None (occurrence: None)
  Receive Date: 20050907
  Receipt Date: 20050714
  Transmission Date: 20060218
  Serious: Yes (Other)
  Sender: FDA-Public Use
  Company Number: 2005UW10552

PATIENT
  Age: 17333 Day
  Sex: Female
  Weight: 123.6 kg

DRUGS (6)
  1. SEROQUEL [Suspect]
     Route: 048
     Dates: end: 20050627
  2. SEROQUEL [Suspect]
     Route: 048
     Dates: start: 20050627
  3. ZOCOR [Concomitant]
     Indication: MIXED HYPERLIPIDAEMIA
     Route: 048
     Dates: start: 20050513
  4. SYNTHROID [Concomitant]
     Indication: HYPOTHYROIDISM
     Route: 048
     Dates: start: 20040224
  5. DIOVAN HCT [Concomitant]
     Indication: HYPERTENSION
     Dosage: 160/12.5
     Route: 048
     Dates: start: 20030101
  6. NORVASC [Concomitant]
     Indication: HYPERTENSION
     Route: 048
     Dates: start: 20040720

REACTIONS (7)
  - AURICULAR SWELLING [None]
  - DRY MOUTH [None]
  - EAR PAIN [None]
  - LOCAL SWELLING [None]
  - NECK PAIN [None]
  - SHOULDER PAIN [None]
  - TONGUE HAEMORRHAGE [None]
